FAERS Safety Report 10159938 (Version 1)
Quarter: 2014Q2

REPORT INFORMATION
  Report Type: Spontaneous
  Country: HR (occurrence: HR)
  Receive Date: 20140508
  Receipt Date: 20140508
  Transmission Date: 20141212
  Serious: Yes (Other)
  Sender: FDA-Public Use
  Company Number: HR-TEVA-479081ISR

PATIENT
  Age: 40 Year
  Sex: Male

DRUGS (2)
  1. OLANDIX 5 MG RASPADLJIVE TABLETE ZA USTA [Suspect]
     Indication: SCHIZOPHRENIA
     Dosage: 5 MILLIGRAM DAILY;
     Route: 048
     Dates: start: 201112
  2. EUTHYROX [Interacting]
     Dosage: 100 MICROGRAM DAILY;
     Route: 048
     Dates: start: 201012

REACTIONS (5)
  - Thirst [Not Recovered/Not Resolved]
  - Dry mouth [Not Recovered/Not Resolved]
  - Polydipsia [Not Recovered/Not Resolved]
  - Infrequent bowel movements [Not Recovered/Not Resolved]
  - Drug interaction [Not Recovered/Not Resolved]
